FAERS Safety Report 9455238 (Version 2)
Quarter: 2013Q3

REPORT INFORMATION
  Report Type: Report from Study
  Country: CN (occurrence: CN)
  Receive Date: 20130813
  Receipt Date: 20130902
  Transmission Date: 20140515
  Serious: No
  Sender: FDA-Public Use
  Company Number: CN-ROCHE-1261209

PATIENT
  Age: 48 Year
  Sex: Female

DRUGS (2)
  1. PEGASYS [Suspect]
     Indication: HEPATITIS C
     Route: 058
     Dates: start: 20130323, end: 20130706
  2. PEGASYS [Suspect]
     Route: 058
     Dates: start: 20130713

REACTIONS (1)
  - Hypersensitivity [Unknown]
